FAERS Safety Report 8042959-X (Version None)
Quarter: 2012Q1

REPORT INFORMATION
  Report Type: 
  Country: None (occurrence: None)
  Receive Date: 20120112
  Receipt Date: 20120103
  Transmission Date: 20120608
  Serious: No
  Sender: FDA-Public Use
  Company Number: US-BAYER-2011-007831

PATIENT
  Age: 59 Year
  Sex: Male
  Weight: 77.098 kg

DRUGS (1)
  1. ULTRAVIST 150 [Suspect]
     Dosage: 100 ML, ONCE
     Route: 042
     Dates: start: 20110117, end: 20110117

REACTIONS (2)
  - ARTHRALGIA [None]
  - PAIN [None]
